FAERS Safety Report 20525732 (Version 2)
Quarter: 2022Q1

REPORT INFORMATION
  Report Type: Report from Study
  Country: FR (occurrence: None)
  Receive Date: 20220228
  Receipt Date: 20220330
  Transmission Date: 20220423
  Serious: Yes (Hospitalization)
  Sender: FDA-Public Use
  Company Number: FR-ROCHE-3029764

PATIENT
  Age: 61 Year
  Sex: Female
  Weight: 55 kg

DRUGS (2)
  1. ATEZOLIZUMAB [Suspect]
     Active Substance: ATEZOLIZUMAB
     Indication: Bladder cancer
     Dosage: MOST RECENT DOSE PRIOR TO EVENT: 12/OCT/2020
     Route: 041
     Dates: start: 20191112
  2. BCG VACCINE [Suspect]
     Active Substance: BCG VACCINE
     Indication: Bladder cancer
     Dosage: MOST RECENT DOSE PRIOR TO EVENT: 18/MAY/2020
     Route: 043
     Dates: start: 20191112

REACTIONS (1)
  - Lung neoplasm malignant [Recovered/Resolved]

NARRATIVE: CASE EVENT DATE: 20220126
